FAERS Safety Report 4517041-6 (Version None)
Quarter: 2005Q1

REPORT INFORMATION
  Report Type: 
  Country: None (occurrence: None)
  Receive Date: 20041029
  Receipt Date: 20040727
  Transmission Date: 20050727
  Serious: No
  Sender: FDA-Public Use
  Company Number: 2004-120797-NL

PATIENT
  Age: 25 Year
  Sex: Female

DRUGS (5)
  1. NUVARING [Suspect]
     Indication: ABDOMINAL PAIN
     Dosage: DF DAILY VAGINAL
     Route: 067
     Dates: start: 20040726
  2. NUVARING [Suspect]
     Indication: CONTRACEPTION
     Dosage: DF DAILY VAGINAL
     Route: 067
     Dates: start: 20040726
  3. NUVARING [Suspect]
     Indication: OVARIAN CYST
     Dosage: DF DAILY VAGINAL
     Route: 067
     Dates: start: 20040726
  4. LEXAPRO [Concomitant]
  5. CLARITIN [Concomitant]

REACTIONS (2)
  - COMPLICATION OF DEVICE REMOVAL [None]
  - DYSURIA [None]
